FAERS Safety Report 18589570 (Version 1)
Quarter: 2020Q4

REPORT INFORMATION
  Report Type: Spontaneous
  Country: CH (occurrence: CH)
  Receive Date: 20201208
  Receipt Date: 20201208
  Transmission Date: 20210114
  Serious: Yes (Hospitalization, Disabling, Other)
  Sender: FDA-Public Use
  Company Number: CH-TEVA-2020-CH-1856471

PATIENT
  Age: 17 Year
  Sex: Female

DRUGS (9)
  1. VINCRISTINE TEVA [Suspect]
     Active Substance: VINCRISTINE
     Indication: MEDULLOBLASTOMA
     Route: 065
  2. LOMUSTINUM [Concomitant]
  3. EMEND [Concomitant]
     Active Substance: APREPITANT
  4. CIMIFEMIN [Concomitant]
     Active Substance: BLACK COHOSH
  5. CISPLATIN SANDOZ [Suspect]
     Active Substance: CISPLATIN
     Indication: MEDULLOBLASTOMA
     Route: 065
  6. BACTRIM [Concomitant]
     Active Substance: SULFAMETHOXAZOLE\TRIMETHOPRIM
  7. PREGABALIN PFIZER [Concomitant]
     Active Substance: PREGABALIN
  8. ENDOXAN [Concomitant]
     Active Substance: CYCLOPHOSPHAMIDE
  9. MELATONINE [Concomitant]
     Active Substance: MELATONIN

REACTIONS (1)
  - Polyneuropathy [Not Recovered/Not Resolved]

NARRATIVE: CASE EVENT DATE: 20201016
